FAERS Safety Report 6019276-2 (Version None)
Quarter: 2008Q4

REPORT INFORMATION
  Report Type: 
  Country: None (occurrence: None)
  Receive Date: 20081219
  Receipt Date: 20080428
  Transmission Date: 20090506
  Serious: Yes (Other)
  Sender: FDA-Public Use
  Company Number: US200804007249

PATIENT
  Age: 68 Year
  Sex: Male

DRUGS (4)
  1. HUMALOG PEN [Suspect]
     Indication: DIABETES MELLITUS
  2. HUMALOG [Suspect]
     Dates: start: 19980101
  3. HUMULIN N [Concomitant]
     Indication: DIABETES MELLITUS
     Dates: end: 20080301
  4. LANTUS [Concomitant]

REACTIONS (3)
  - BLOOD GLUCOSE DECREASED [None]
  - BLOOD GLUCOSE INCREASED [None]
  - LOSS OF CONSCIOUSNESS [None]
